FAERS Safety Report 8240412-1 (Version None)
Quarter: 2012Q1

REPORT INFORMATION
  Report Type: 
  Country: None (occurrence: None)
  Receive Date: 20120328
  Receipt Date: 20120316
  Transmission Date: 20120608
  Serious: Yes (Other)
  Sender: FDA-Public Use
  Company Number: JP-PFIZER INC-2011261253

PATIENT
  Age: 78 Year
  Sex: Male
  Weight: 60 kg

DRUGS (3)
  1. OLMESARTAN MEDOXOMIL [Concomitant]
     Indication: HYPERTENSION
     Dosage: 20 MG/DAY
     Route: 048
  2. ADALAT CC [Concomitant]
     Indication: HYPERTENSION
     Dosage: 80 MG/DAY
     Route: 048
  3. ESTRACYT [Suspect]
     Indication: PROSTATE CANCER
     Dosage: 313.4 MG/DAY
     Route: 048
     Dates: start: 20070401, end: 20111017

REACTIONS (2)
  - RIGHT VENTRICULAR FAILURE [None]
  - DECREASED APPETITE [None]
